FAERS Safety Report 23516101 (Version 2)
Quarter: 2024Q1

REPORT INFORMATION
  Report Type: Spontaneous
  Country: IN (occurrence: IN)
  Receive Date: 20240213
  Receipt Date: 20240305
  Transmission Date: 20240410
  Serious: Yes (Congenital Anomaly, Other)
  Sender: FDA-Public Use
  Company Number: IN-GLAXOSMITHKLINE-IN2024GSK019054

PATIENT

DRUGS (6)
  1. ALBUTEROL [Suspect]
     Active Substance: ALBUTEROL
     Indication: Endocardial fibroelastosis
     Dosage: 4 MG, QD
     Route: 064
  2. ASPIRIN [Suspect]
     Active Substance: ASPIRIN
     Indication: Endocardial fibroelastosis
     Dosage: 75 MG
  3. DEXAMETHASONE [Suspect]
     Active Substance: DEXAMETHASONE
     Indication: Endocardial fibroelastosis
     Dosage: 6 MG, 1D
     Route: 064
  4. DEXAMETHASONE [Suspect]
     Active Substance: DEXAMETHASONE
     Dosage: 1 MG, 1D
     Route: 064
  5. HYDROXYCHLOROQUINE [Suspect]
     Active Substance: HYDROXYCHLOROQUINE
     Indication: Endocardial fibroelastosis
     Dosage: 300 MG, QD
     Route: 064
  6. VITAMIN D [Suspect]
     Active Substance: VITAMIN D NOS
     Indication: Endocardial fibroelastosis
     Dosage: UNK
     Route: 064

REACTIONS (5)
  - Endocardial fibroelastosis [Recovering/Resolving]
  - Bradycardia foetal [Unknown]
  - Atrioventricular dissociation [Unknown]
  - Foetal growth restriction [Unknown]
  - Foetal exposure during pregnancy [Unknown]
